FAERS Safety Report 25122123 (Version 1)
Quarter: 2025Q1

REPORT INFORMATION
  Report Type: Spontaneous
  Country: US (occurrence: US)
  Receive Date: 20250326
  Receipt Date: 20250326
  Transmission Date: 20250408
  Serious: No
  Sender: GLAND PHARMA LTD
  Company Number: US-GLANDPHARMA-US-2025GLNSPO00750

PATIENT

DRUGS (2)
  1. LINCOMYCIN [Suspect]
     Active Substance: LINCOMYCIN
     Indication: Peripheral swelling
     Route: 065
  2. LINCOMYCIN [Suspect]
     Active Substance: LINCOMYCIN
     Indication: Peripheral swelling

REACTIONS (1)
  - Drug ineffective for unapproved indication [Unknown]
